FAERS Safety Report 5473162-5 (Version None)
Quarter: 2007Q3

REPORT INFORMATION
  Report Type: 
  Country: None (occurrence: None)
  Receive Date: 20070927
  Receipt Date: 20070911
  Transmission Date: 20080115
  Serious: Yes (Hospitalization)
  Sender: FDA-Public Use
  Company Number: DSA_30543_2007

PATIENT
  Age: 73 Year
  Sex: Female

DRUGS (8)
  1. DILTIAZEM [Suspect]
     Indication: HYPERTENSION
     Dosage: (200 MG QD ORAL)
     Route: 048
     Dates: start: 20070530, end: 20070608
  2. DIOVAN HCT [Concomitant]
  3. OMEPRAZOLE [Concomitant]
  4. ISOSORBIDE MONONITRATE [Concomitant]
  5. ASCAL CARDIO [Concomitant]
  6. OXAZEPAM [Concomitant]
  7. PARACETAMOL [Concomitant]
  8. IBUPROFEN [Concomitant]

REACTIONS (7)
  - ALLERGY TEST POSITIVE [None]
  - BODY TEMPERATURE INCREASED [None]
  - DEHYDRATION [None]
  - DRUG HYPERSENSITIVITY [None]
  - FACE OEDEMA [None]
  - URTICARIA [None]
  - VOMITING [None]
